FAERS Safety Report 17073327 (Version 1)
Quarter: 2019Q4

REPORT INFORMATION
  Report Type: Spontaneous
  Country: IT (occurrence: IT)
  Receive Date: 20191126
  Receipt Date: 20191126
  Transmission Date: 20200122
  Serious: Yes (Other)
  Sender: FDA-Public Use
  Company Number: IT-AUROBINDO-AUR-APL-2019-074130

PATIENT
  Age: 68 Year
  Sex: Male

DRUGS (4)
  1. TACROLIMUS. [Concomitant]
     Active Substance: TACROLIMUS
     Indication: IMMUNOSUPPRESSANT DRUG THERAPY
     Dosage: 0.5 MILLIGRAM
     Route: 065
  2. VORICONAZOLE. [Suspect]
     Active Substance: VORICONAZOLE
     Dosage: 12 MILLIGRAM/KILOGRAM, ONCE A DAY (LOADING DOSE 6 MG/KG (400 MG) EVERY 12 HOUR FOR TWO DOSES)
     Route: 048
     Dates: start: 201701
  3. VORICONAZOLE. [Suspect]
     Active Substance: VORICONAZOLE
     Indication: ANTIFUNGAL TREATMENT
     Dosage: 8 MILLIGRAM/KILOGRAM, ONCE A DAY (4 MG/KG, 2X/DAY (4 MG/KG (300 MG) EVERY 12 HOURS)
     Route: 048
     Dates: start: 201701
  4. VORICONAZOLE. [Suspect]
     Active Substance: VORICONAZOLE
     Indication: EVIDENCE BASED TREATMENT
     Dosage: 400 MILLIGRAM, ONCE A DAY (WAS ADJUSTED FROM 300 MG TO 200 MG)
     Route: 048
     Dates: start: 201701

REACTIONS (5)
  - Confusional state [Unknown]
  - Dizziness [Unknown]
  - Hallucination [Unknown]
  - Drug ineffective [Recovered/Resolved]
  - Eye irritation [Unknown]

NARRATIVE: CASE EVENT DATE: 2017
